FAERS Safety Report 16651011 (Version 2)
Quarter: 2019Q3

REPORT INFORMATION
  Report Type: Spontaneous
  Country: US (occurrence: US)
  Receive Date: 20190731
  Receipt Date: 20190816
  Transmission Date: 20191004
  Serious: No
  Sender: FDA-Public Use
  Company Number: US-009507513-1907USA014217

PATIENT
  Age: 28 Year
  Sex: Female
  Weight: 77.1 kg

DRUGS (5)
  1. NUVARING [Suspect]
     Active Substance: ETHINYL ESTRADIOL\ETONOGESTREL
     Indication: CONTRACEPTION
     Dosage: 1 RING EVERY 21 DAYS
     Route: 067
     Dates: start: 2015
  2. NUVARING [Suspect]
     Active Substance: ETHINYL ESTRADIOL\ETONOGESTREL
     Dosage: 1 RING EVERY 21 DAYS
     Route: 067
     Dates: start: 20190710, end: 20190717
  3. ADDERALL [Concomitant]
     Active Substance: AMPHETAMINE ASPARTATE\AMPHETAMINE SULFATE\DEXTROAMPHETAMINE SACCHARATE\DEXTROAMPHETAMINE SULFATE
     Dosage: 20 MILLIGRAM ONCE IN THE MORNING
     Route: 048
  4. SPIRONOLACTONE. [Concomitant]
     Active Substance: SPIRONOLACTONE
     Dosage: 50 MILLIGRAM ONCE A DAY
  5. NUVARING [Suspect]
     Active Substance: ETHINYL ESTRADIOL\ETONOGESTREL
     Dosage: 1 RING EVERY 21 DAYS
     Route: 067
     Dates: start: 20190701, end: 20190708

REACTIONS (10)
  - Pain [Recovering/Resolving]
  - Dyspareunia [Recovering/Resolving]
  - Product quality issue [Unknown]
  - Swelling [Recovering/Resolving]
  - Device expulsion [Recovering/Resolving]
  - Incorrect product administration duration [Unknown]
  - Skin abrasion [Recovering/Resolving]
  - Medical device site discomfort [Recovering/Resolving]
  - Inflammation [Recovering/Resolving]
  - Pruritus [Recovering/Resolving]

NARRATIVE: CASE EVENT DATE: 201907
